FAERS Safety Report 4957718-1 (Version None)
Quarter: 2006Q1

REPORT INFORMATION
  Report Type: 
  Country: None (occurrence: None)
  Receive Date: 20060330
  Receipt Date: 20060317
  Transmission Date: 20060701
  Serious: Yes (Life-Threatening, Hospitalization)
  Sender: FDA-Public Use
  Company Number: ZA-JNJFOC-20060304491

PATIENT
  Sex: Male
  Weight: 4.9 kg

DRUGS (3)
  1. BLINDED; TOPIRAMATE [Suspect]
     Indication: PARTIAL SEIZURES
     Route: 048
  2. VALPROATE SODIUM [Suspect]
     Indication: COMPLEX PARTIAL SEIZURES
     Route: 048
  3. PHENOBARBITONE [Suspect]
     Indication: COMPLEX PARTIAL SEIZURES
     Route: 048

REACTIONS (3)
  - GASTROENTERITIS [None]
  - PNEUMONIA [None]
  - SEPSIS [None]
